FAERS Safety Report 20992113 (Version 1)
Quarter: 2022Q2

REPORT INFORMATION
  Report Type: Spontaneous
  Country: US (occurrence: US)
  Receive Date: 20220622
  Receipt Date: 20220622
  Transmission Date: 20220720
  Serious: No
  Sender: FDA-Public Use
  Company Number: US-009507513-2205USA008594

PATIENT
  Age: 85 Year
  Sex: Female

DRUGS (4)
  1. BELSOMRA [Suspect]
     Active Substance: SUVOREXANT
     Indication: Insomnia
     Dosage: 10MG/1X TABLET DAILY 30 MINS BEFORE BED
     Route: 048
     Dates: start: 20220505
  2. HEMP [Concomitant]
     Active Substance: HEMP
  3. VITAMIN D3 [Concomitant]
     Active Substance: CHOLECALCIFEROL
  4. FISH OIL [Concomitant]
     Active Substance: FISH OIL

REACTIONS (3)
  - Drug ineffective [Unknown]
  - Nightmare [Unknown]
  - Feeling of despair [Unknown]

NARRATIVE: CASE EVENT DATE: 20220501
